FAERS Safety Report 11531031 (Version 1)
Quarter: 2015Q3

REPORT INFORMATION
  Report Type: Spontaneous
  Country: US (occurrence: US)
  Receive Date: 20150921
  Receipt Date: 20150921
  Transmission Date: 20151125
  Serious: Yes (Other)
  Sender: FDA-Public Use
  Company Number: US-JNJFOC-20150911241

PATIENT
  Sex: Female
  Weight: 81.65 kg

DRUGS (7)
  1. GLIMEPIRIDE. [Suspect]
     Active Substance: GLIMEPIRIDE
     Indication: PRODUCT USED FOR UNKNOWN INDICATION
     Route: 065
  2. INVOKANA [Suspect]
     Active Substance: CANAGLIFLOZIN
     Indication: TYPE 2 DIABETES MELLITUS
     Route: 048
     Dates: start: 2015, end: 201508
  3. VESICARE [Concomitant]
     Active Substance: SOLIFENACIN SUCCINATE
     Route: 048
  4. JANUMET [Concomitant]
     Active Substance: METFORMIN HYDROCHLORIDE\SITAGLIPTIN PHOSPHATE
     Route: 048
  5. ENALAPRIL [Concomitant]
     Active Substance: ENALAPRIL
     Route: 048
  6. SIMVASTATIN. [Concomitant]
     Active Substance: SIMVASTATIN
     Route: 048
  7. INVOKANA [Suspect]
     Active Substance: CANAGLIFLOZIN
     Indication: TYPE 2 DIABETES MELLITUS
     Route: 048
     Dates: start: 201505, end: 2015

REACTIONS (11)
  - Shock hypoglycaemic [Unknown]
  - Dysuria [Unknown]
  - Thirst [Unknown]
  - Skin infection [Unknown]
  - Insomnia [Unknown]
  - Dehydration [Unknown]
  - Vaginal lesion [Unknown]
  - Drug ineffective [Unknown]
  - Discomfort [Unknown]
  - Pollakiuria [Unknown]
  - Adverse event [Unknown]

NARRATIVE: CASE EVENT DATE: 2015
